FAERS Safety Report 4423294-5 (Version None)
Quarter: 2004Q3

REPORT INFORMATION
  Report Type: 
  Country: None (occurrence: None)
  Receive Date: 20040811
  Receipt Date: 20040809
  Transmission Date: 20050211
  Serious: Yes (Other)
  Sender: FDA-Public Use
  Company Number: US-GLAXOSMITHKLINE-A0521576A

PATIENT
  Sex: Male

DRUGS (1)
  1. AVODART [Suspect]
     Indication: ILL-DEFINED DISORDER
     Route: 048

REACTIONS (1)
  - NEPHROLITHIASIS [None]
